FAERS Safety Report 12583655 (Version 3)
Quarter: 2017Q3

REPORT INFORMATION
  Report Type: Report from Study
  Country: US (occurrence: US)
  Receive Date: 20160722
  Receipt Date: 20170926
  Transmission Date: 20171127
  Serious: No
  Sender: FDA-Public Use
  Company Number: PHHY2016US099449

PATIENT
  Age: 48 Year
  Sex: Female

DRUGS (1)
  1. GILENYA [Suspect]
     Active Substance: FINGOLIMOD HYDROCHLORIDE
     Indication: MULTIPLE SCLEROSIS
     Dosage: UNK, QD
     Route: 048

REACTIONS (9)
  - Aspartate aminotransferase increased [Unknown]
  - Blood pressure increased [Unknown]
  - Melanocytic naevus [Unknown]
  - White blood cell count decreased [Unknown]
  - Lymphopenia [Recovered/Resolved]
  - Blood bilirubin decreased [Unknown]
  - Alanine aminotransferase increased [Unknown]
  - Temperature intolerance [Unknown]
  - Dizziness [Unknown]

NARRATIVE: CASE EVENT DATE: 20160211
